FAERS Safety Report 8791063 (Version 1)
Quarter: 2012Q4

REPORT INFORMATION
  Report Type: Spontaneous
  Country: US (occurrence: None)
  Receive Date: 20120913
  Receipt Date: 20120913
  Transmission Date: 20130627
  Serious: No
  Sender: FDA-Public Use
  Company Number: None

PATIENT
  Sex: Female

DRUGS (3)
  1. METHYLPHENIDATE [Suspect]
     Dosage: 20mg/24 hr 1 qd po
     Route: 048
     Dates: start: 200309
  2. FLUOXETINE [Concomitant]
  3. EFFEXOR [Concomitant]

REACTIONS (4)
  - Agitation [None]
  - Irritability [None]
  - Tremor [None]
  - Feeling jittery [None]
